FAERS Safety Report 5043222-1 (Version None)
Quarter: 2006Q3

REPORT INFORMATION
  Report Type: 
  Country: None (occurrence: None)
  Receive Date: 20060705
  Receipt Date: 20060623
  Transmission Date: 20061208
  Serious: Yes (Other)
  Sender: FDA-Public Use
  Company Number: DE-BRISTOL-MYERS SQUIBB COMPANY-13428081

PATIENT
  Age: 55 Year
  Sex: Male

DRUGS (4)
  1. ERBITUX [Suspect]
     Indication: PANCREATIC CARCINOMA METASTATIC
     Route: 042
     Dates: start: 20050823, end: 20050823
  2. GEMCITABINE [Suspect]
     Indication: PANCREATIC CARCINOMA METASTATIC
     Route: 042
  3. OXALIPLATIN [Suspect]
     Indication: PANCREATIC CARCINOMA METASTATIC
     Route: 042
  4. FENISTIL [Concomitant]
     Indication: PREMEDICATION
     Route: 042

REACTIONS (2)
  - HYPERSENSITIVITY [None]
  - SYNCOPE [None]
